FAERS Safety Report 9177701 (Version 1)
Quarter: 2012Q4

REPORT INFORMATION
  Report Type: Report from Study
  Country: US (occurrence: US)
  Receive Date: 20121005
  Receipt Date: 20121005
  Transmission Date: 20130627
  Serious: Yes (Hospitalization, Other)
  Sender: FDA-Public Use
  Company Number: US-RB-027344-11

PATIENT
  Age: 0 None
  Sex: Male
  Weight: 2.99 kg

DRUGS (16)
  1. SUBOXONE TABLET [Suspect]
     Indication: DRUG DEPENDENCE
     Route: 064
     Dates: start: 201001, end: 201005
  2. GENERIC BUPRENORPHINE [Suspect]
     Indication: DRUG DEPENDENCE
     Dosage: Unknown dosing details
     Route: 064
     Dates: start: 201005, end: 20101015
  3. SOMA [Suspect]
     Indication: RHEUMATOID ARTHRITIS
     Route: 064
     Dates: start: 201001, end: 201003
  4. ADDERALL [Suspect]
     Indication: ATTENTION DEFICIT/HYPERACTIVITY DISORDER
     Route: 064
     Dates: start: 201001, end: 201007
  5. PROZAC [Suspect]
     Indication: DEPRESSION
     Route: 064
     Dates: start: 201001, end: 20101015
  6. LITHIUM [Suspect]
     Indication: BIPOLAR DISORDER
     Route: 064
     Dates: start: 201001, end: 20101015
  7. KLONOPIN [Suspect]
     Indication: ANXIETY
     Route: 064
     Dates: start: 201001, end: 20101015
  8. KLONOPIN [Suspect]
     Indication: ANXIETY
     Route: 064
     Dates: start: 201001, end: 20101015
  9. KLONOPIN [Suspect]
     Indication: ANXIETY
     Route: 064
     Dates: start: 201001, end: 20101015
  10. KLONOPIN [Suspect]
     Indication: POST-TRAUMATIC STRESS DISORDER
     Route: 064
     Dates: start: 201001, end: 20101015
  11. KLONOPIN [Suspect]
     Indication: ANXIETY
     Route: 064
     Dates: start: 201001, end: 20101015
  12. DEPAKOTE [Suspect]
     Indication: CONVULSION
     Route: 064
     Dates: end: 20101015
  13. DEPAKOTE [Suspect]
     Indication: CONVULSION
     Route: 064
     Dates: end: 20101015
  14. DEPAKOTE [Suspect]
     Indication: CONVULSION
     Route: 064
     Dates: end: 20101015
  15. SEROQUEL [Suspect]
     Indication: BIPOLAR DISORDER
     Dosage: Dosing details unknown
     Route: 064
  16. MAALOX [Suspect]
     Indication: DYSPEPSIA
     Dosage: Unknown dosing details
     Route: 064

REACTIONS (6)
  - Drug withdrawal syndrome neonatal [Recovered/Resolved]
  - Muscular weakness [Unknown]
  - Abdominal pain [Unknown]
  - Constipation [Unknown]
  - Gastrooesophageal reflux disease [Unknown]
  - Foetal exposure during pregnancy [Recovered/Resolved]
